FAERS Safety Report 8560666-1 (Version None)
Quarter: 2012Q3

REPORT INFORMATION
  Report Type: 
  Country: None (occurrence: None)
  Receive Date: 20120802
  Receipt Date: 20120724
  Transmission Date: 20120928
  Serious: Yes (Hospitalization)
  Sender: FDA-Public Use
  Company Number: PHHY2012IT063326

PATIENT
  Age: 9 Year
  Sex: Female

DRUGS (4)
  1. ALBUTEROL SULATE [Suspect]
     Indication: ASTHMA
     Dosage: 6 MG, DAILY
  2. CORTICOSTEROIDS [Suspect]
  3. BECLOMETHASONE DIPROPIONATE [Suspect]
     Indication: ASTHMA
     Dosage: 0.8 MG, DAILY
  4. BETA-2 [Suspect]

REACTIONS (1)
  - CYSTITIS HAEMORRHAGIC [None]
